FAERS Safety Report 8337481-7 (Version None)
Quarter: 2012Q2

REPORT INFORMATION
  Report Type: 
  Country: None (occurrence: None)
  Receive Date: 20120504
  Receipt Date: 20120427
  Transmission Date: 20120825
  Serious: Yes (Other)
  Sender: FDA-Public Use
  Company Number: AU-B.I. PHARMACEUTICALS,INC./RIDGEFIELD-2012-AU-00816AU

PATIENT
  Age: 83 Year
  Sex: Male

DRUGS (2)
  1. PRADAXA [Suspect]
     Dosage: 220 MG
  2. NEXIUM [Concomitant]

REACTIONS (2)
  - DYSPEPSIA [None]
  - CEREBROVASCULAR ACCIDENT [None]
